FAERS Safety Report 6227451-7 (Version None)
Quarter: 2009Q2

REPORT INFORMATION
  Report Type: 
  Country: None (occurrence: None)
  Receive Date: 20090612
  Receipt Date: 20090602
  Transmission Date: 20091009
  Serious: Yes (Life-Threatening, Other)
  Sender: FDA-Public Use
  Company Number: US-JNJFOC-20090502823

PATIENT
  Sex: Female
  Weight: 50.8 kg

DRUGS (26)
  1. REMICADE [Suspect]
     Indication: RHEUMATOID ARTHRITIS
     Dosage: 44TH DOSE, LAST DOSE
     Route: 042
  2. SUCRALFATE [Concomitant]
     Dosage: BEFORE MEALS
     Route: 048
  3. ALBUTEROL [Concomitant]
     Indication: COUGH
     Route: 055
  4. ALBUTEROL [Concomitant]
     Indication: WHEEZING
     Dosage: ACTUATION HFA AEROSOL, 1-2 PUFFS AS NEEDED
     Route: 055
  5. AMLODIPINE [Concomitant]
  6. LIPASE [Concomitant]
     Dosage: 1,200 UNIT CAPSULE, 2 WITH EACH MEAL AND ONE WITH EACH SNACK
     Route: 048
  7. AMYLASE [Concomitant]
     Dosage: 15,000 UNIT CAPSULE, 2 WITH EACH MEAL AND ONE WITH EACH SNACK
     Route: 048
  8. PROTEASE [Concomitant]
     Dosage: 15,000 UNIT CAPSULE, 2 WITH EACH MEAL AND 1 WITH EACH SNACK
     Route: 048
  9. ASPIRIN [Concomitant]
     Route: 048
  10. CITRACAL [Concomitant]
  11. FLUCONAZOLE [Concomitant]
  12. ADVAIR HFA [Concomitant]
     Dosage: 250-50 MCG DOSE DISK WITH DEVICE
     Route: 055
  13. FOLIC ACID [Concomitant]
     Route: 048
  14. LASIX [Concomitant]
  15. ACETAMINOPHEN AND HYDROCODONE BITARTRATE [Concomitant]
     Indication: PAIN
     Dosage: 5-325 MG TABLET, EVERY 4-6 HOURS AS NEEDED
     Route: 048
  16. HYDREA [Concomitant]
     Dosage: 1 CAPSULE EVERY OTHER DAY
     Route: 048
  17. LOVAZA [Concomitant]
     Route: 048
  18. ONDANSETRON [Concomitant]
     Route: 048
  19. PANTOPRAZOLE SODIUM [Concomitant]
     Dosage: DELAYED RELEASE, E.C.
     Route: 048
  20. PROCHLORPERAZINE [Concomitant]
     Indication: VOMITING
     Route: 048
  21. PROCHLORPERAZINE [Concomitant]
     Indication: NAUSEA
     Route: 048
  22. ZOLOFT [Concomitant]
     Route: 048
  23. METOPROLOL TARTRATE [Concomitant]
     Route: 048
  24. CENTRUM SILVER [Concomitant]
     Route: 048
  25. SPIRIVA [Concomitant]
     Dosage: 2 PUFFS, AS NEEDED
     Route: 055
  26. LIPITOR [Concomitant]
     Route: 048

REACTIONS (6)
  - ANAEMIA [None]
  - DEHYDRATION [None]
  - LOWER RESPIRATORY TRACT INFLAMMATION [None]
  - MALNUTRITION [None]
  - PANCREATIC CARCINOMA METASTATIC [None]
  - RHEUMATOID NODULE [None]
